FAERS Safety Report 7635011-6 (Version None)
Quarter: 2011Q3

REPORT INFORMATION
  Report Type: 
  Country: None (occurrence: None)
  Receive Date: 20110718
  Receipt Date: 20110704
  Transmission Date: 20111222
  Serious: Yes (Death, Other)
  Sender: FDA-Public Use
  Company Number: DSA_47149_2011

PATIENT
  Age: 50 Year
  Sex: Female

DRUGS (2)
  1. DILTIAZEM HYDROCHLORIDE [Suspect]
     Indication: HYPERTENSION
     Dosage: DF ORAL
     Route: 048
     Dates: start: 20090301
  2. PREDNISOLONE [Concomitant]

REACTIONS (13)
  - SEPSIS [None]
  - ANAEMIA [None]
  - INFECTIOUS PERITONITIS [None]
  - LARGE INTESTINE PERFORATION [None]
  - BLOOD ALBUMIN DECREASED [None]
  - PLEURAL EFFUSION [None]
  - RENAL FAILURE CHRONIC [None]
  - HAEMODIALYSIS [None]
  - GENERAL PHYSICAL HEALTH DETERIORATION [None]
  - PROTEIN TOTAL DECREASED [None]
  - DISEASE PROGRESSION [None]
  - PUSTULAR PSORIASIS [None]
  - CYTOMEGALOVIRUS COLITIS [None]
